FAERS Safety Report 9441484 (Version 1)
Quarter: 2013Q3

REPORT INFORMATION
  Report Type: Spontaneous
  Country: US (occurrence: US)
  Receive Date: 20130805
  Receipt Date: 20130805
  Transmission Date: 20140515
  Serious: Yes (Other)
  Sender: FDA-Public Use
  Company Number: US-TEVA-422502USA

PATIENT
  Age: 47 Year
  Sex: Male

DRUGS (8)
  1. PRAMIPEXOLE [Suspect]
     Indication: PARKINSON^S DISEASE
     Dosage: 2.5MG DAILY
     Route: 065
  2. AMANTADINE [Concomitant]
     Route: 065
  3. LEVODOPA, CARBIDOPA [Concomitant]
     Dosage: LEVODOPA EQUIVALENT DOSE 3140MG DAILY
     Route: 065
  4. ENTACAPONE [Concomitant]
     Route: 065
  5. SELEGILINE [Concomitant]
     Route: 065
  6. BACLOFEN [Concomitant]
     Route: 065
  7. ESCITALOPRAM [Concomitant]
     Route: 065
  8. CALCIUM CARBONATE [Concomitant]
     Route: 065

REACTIONS (4)
  - Impulsive behaviour [Recovered/Resolved]
  - Hypersexuality [Recovered/Resolved]
  - Jealous delusion [Recovered/Resolved]
  - Gambling [Recovered/Resolved]
